FAERS Safety Report 9863692 (Version 2)
Quarter: 2014Q1

REPORT INFORMATION
  Report Type: Spontaneous
  Country: US (occurrence: US)
  Receive Date: 20140203
  Receipt Date: 20140221
  Transmission Date: 20141002
  Serious: Yes (Other)
  Sender: FDA-Public Use
  Company Number: US-JNJFOC-20140117114

PATIENT
  Age: 42 Year
  Sex: Male
  Weight: 77.4 kg

DRUGS (9)
  1. IMBRUVICA [Suspect]
     Indication: MANTLE CELL LYMPHOMA REFRACTORY
     Dosage: ALTERNATING 420/560 MG DAILY
     Route: 048
     Dates: end: 201402
  2. IMBRUVICA [Suspect]
     Indication: MANTLE CELL LYMPHOMA REFRACTORY
     Route: 048
     Dates: start: 20140210
  3. IMBRUVICA [Suspect]
     Indication: MANTLE CELL LYMPHOMA REFRACTORY
     Route: 048
     Dates: start: 20131220
  4. CASPOFUNGIN [Suspect]
     Indication: ANTIFUNGAL PROPHYLAXIS
     Route: 042
  5. VORICONAZOLE [Concomitant]
     Indication: ANTIFUNGAL PROPHYLAXIS
     Route: 048
  6. ACYCLOVIR [Concomitant]
     Indication: BRONCHOPULMONARY ASPERGILLOSIS
  7. AUGMENTIN [Concomitant]
     Indication: BRONCHOPULMONARY ASPERGILLOSIS
     Dosage: 875MG-125MG
  8. BACTRIM DS [Concomitant]
     Indication: BRONCHOPULMONARY ASPERGILLOSIS
     Dosage: 800MG-160MG
  9. PROCRIT (ERYTHROPOIETIN) [Concomitant]
     Dosage: UNK U/ML UNK

REACTIONS (2)
  - Liver function test abnormal [Recovering/Resolving]
  - Fatigue [Recovering/Resolving]
